FAERS Safety Report 12766123 (Version 1)
Quarter: 2016Q3

REPORT INFORMATION
  Report Type: Spontaneous
  Country: US (occurrence: US)
  Receive Date: 20160921
  Receipt Date: 20160921
  Transmission Date: 20161109
  Serious: Yes (Other)
  Sender: FDA-Public Use
  Company Number: US-PFIZER INC-2016434409

PATIENT
  Age: 24 Year
  Sex: Male

DRUGS (5)
  1. XANAX [Suspect]
     Active Substance: ALPRAZOLAM
     Dosage: UNK
  2. EVZIO [Suspect]
     Active Substance: NALOXONE HYDROCHLORIDE
     Indication: OVERDOSE
     Dosage: UNK, (ONCE)
     Dates: start: 2016, end: 2016
  3. FENTANYL CITRATE. [Suspect]
     Active Substance: FENTANYL CITRATE
     Dosage: UNK
  4. NARCAN [Suspect]
     Active Substance: NALOXONE HYDROCHLORIDE
     Indication: OVERDOSE
     Dosage: 4 MG, 2X/DAY
     Route: 045
     Dates: start: 2016, end: 2016
  5. HEROIN [Concomitant]
     Active Substance: DIACETYLMORPHINE
     Dosage: UNK

REACTIONS (6)
  - Hypopnoea [Recovering/Resolving]
  - Unresponsive to stimuli [Unknown]
  - Feeling abnormal [Recovered/Resolved]
  - Withdrawal syndrome [Recovering/Resolving]
  - Malaise [Unknown]
  - Vomiting [Recovered/Resolved]

NARRATIVE: CASE EVENT DATE: 2016
